FAERS Safety Report 15091887 (Version 1)
Quarter: 2018Q2

REPORT INFORMATION
  Report Type: Spontaneous
  Country: US (occurrence: US)
  Receive Date: 20180608
  Receipt Date: 20180608
  Transmission Date: 20180711
  Serious: No
  Sender: FDA-Public Use
  Company Number: None

PATIENT
  Age: 19 Year
  Sex: Female

DRUGS (1)
  1. SYMDEKO [Suspect]
     Active Substance: IVACAFTOR\TEZACAFTOR
     Dates: start: 20180501, end: 20180608

REACTIONS (3)
  - Cystic fibrosis [None]
  - Condition aggravated [None]
  - Sinusitis [None]

NARRATIVE: CASE EVENT DATE: 20180525
